FAERS Safety Report 25757787 (Version 1)
Quarter: 2025Q3

REPORT INFORMATION
  Report Type: Spontaneous
  Country: CN (occurrence: CN)
  Receive Date: 20250903
  Receipt Date: 20250903
  Transmission Date: 20251021
  Serious: Yes (Hospitalization, Congenital Anomaly, Other)
  Sender: VERITY PHARMACEUTICALS INC.
  Company Number: CN-VER-202500037

PATIENT
  Age: 13 Year
  Sex: Female

DRUGS (1)
  1. TRIPTORELIN [Suspect]
     Active Substance: TRIPTORELIN
     Indication: Amenorrhoea
     Route: 065

REACTIONS (6)
  - Endometriosis [Recovered/Resolved]
  - Pyrexia [Recovered/Resolved]
  - Nutritional condition abnormal [Recovered/Resolved]
  - Off label use [Unknown]
  - Haematoma infection [Recovered/Resolved]
  - Inflammation [Recovered/Resolved]

NARRATIVE: CASE EVENT DATE: 20230823
